FAERS Safety Report 6794168-X (Version None)
Quarter: 2010Q2

REPORT INFORMATION
  Report Type: 
  Country: None (occurrence: None)
  Receive Date: 20100624
  Receipt Date: 20081028
  Transmission Date: 20101027
  Serious: No
  Sender: FDA-Public Use
  Company Number: US-PFIZER INC-ENC200800200

PATIENT
  Sex: Female

DRUGS (6)
  1. ARGATROBAN [Suspect]
     Dosage: 0.89 MCG/KG/MIN
     Route: 042
     Dates: start: 20081018
  2. WARFARIN [Suspect]
     Dosage: 2.5 MILLIGRAM; 5 MILLIGRAM
     Route: 065
     Dates: start: 20081025, end: 20081029
  3. WARFARIN [Suspect]
     Route: 048
     Dates: start: 20081030
  4. PLAVIX [Concomitant]
  5. HEPARIN [Concomitant]
     Route: 042
     Dates: start: 20081009, end: 20081010
  6. HEPARIN [Concomitant]
     Route: 058
     Dates: start: 20081010, end: 20081018

REACTIONS (1)
  - COAGULATION TIME PROLONGED [None]
